FAERS Safety Report 5429300-3 (Version None)
Quarter: 2007Q3

REPORT INFORMATION
  Report Type: 
  Country: None (occurrence: None)
  Receive Date: 20070827
  Receipt Date: 20070827
  Transmission Date: 20080115
  Serious: Yes (Hospitalization)
  Sender: FDA-Public Use
  Company Number: None

PATIENT
  Sex: Male
  Weight: 88 kg

DRUGS (14)
  1. CYCLOPHOSPHAMIDE [Suspect]
     Dosage: 1224 MG
  2. DOXIL [Suspect]
     Dosage: 71 MG
  3. NEULASTA [Suspect]
     Dosage: 6 MG
  4. PREDNISONE [Suspect]
     Dosage: 400 MG
  5. RITUXIMAB (MOAB C2B8 ANTI CD20, CHIMERIC) [Suspect]
     Dosage: 765 MG
  6. VINCRISTINE SULFATE [Suspect]
     Dosage: 2 MG
  7. ATENOLOL [Concomitant]
  8. CENTRUM [Concomitant]
  9. DOXAZOSIN MESYLATE [Concomitant]
  10. GLYBURIDE [Concomitant]
  11. LOVENOX [Concomitant]
  12. PREVACID [Concomitant]
  13. SENOKOT [Concomitant]
  14. SYNTHROID [Concomitant]

REACTIONS (2)
  - PLATELET COUNT DECREASED [None]
  - WHITE BLOOD CELL COUNT DECREASED [None]
